FAERS Safety Report 15048770 (Version 3)
Quarter: 2025Q1

REPORT INFORMATION
  Report Type: Spontaneous
  Country: US (occurrence: US)
  Receive Date: 20180622
  Receipt Date: 20250210
  Transmission Date: 20250409
  Serious: Yes (Other)
  Sender: BIOGEN
  Company Number: US-BIOGEN-2018BI00598290

PATIENT
  Sex: Male

DRUGS (1)
  1. TYSABRI [Suspect]
     Active Substance: NATALIZUMAB
     Indication: Paternal exposure timing unspecified
     Route: 050

REACTIONS (2)
  - Tethered oral tissue [Unknown]
  - Paternal exposure before pregnancy [Recovered/Resolved]
